FAERS Safety Report 7322495-6 (Version None)
Quarter: 2011Q1

REPORT INFORMATION
  Report Type: 
  Country: None (occurrence: None)
  Receive Date: 20110301
  Receipt Date: 20100908
  Transmission Date: 20110831
  Serious: No
  Sender: FDA-Public Use
  Company Number: US-BAYER-201035737NA

PATIENT
  Sex: Female

DRUGS (1)
  1. MIRENA [Suspect]
     Indication: MENORRHAGIA
     Dosage: 20 MG/24HR, UNK
     Route: 015
     Dates: start: 20100723

REACTIONS (3)
  - VAGINAL HAEMORRHAGE [None]
  - MENOMETRORRHAGIA [None]
  - MEDICAL DEVICE COMPLICATION [None]
